FAERS Safety Report 4791508-8 (Version None)
Quarter: 2005Q4

REPORT INFORMATION
  Report Type: 
  Country: None (occurrence: None)
  Receive Date: 20051007
  Receipt Date: 20041129
  Transmission Date: 20060501
  Serious: No
  Sender: FDA-Public Use
  Company Number: US-BRISTOL-MYERS SQUIBB COMPANY-12779021

PATIENT
  Age: 67 Year
  Sex: Female
  Weight: 54 kg

DRUGS (4)
  1. AVALIDE [Suspect]
     Indication: HYPERTENSION
     Dates: start: 20041201
  2. AVAPRO [Suspect]
     Indication: HYPERTENSION
     Dosage: INTERRUPTED 09-DEC-2004 DUE TO SWITCH TO AVALIDE; PT SWITCHED BACK TO AVAPRO
     Route: 048
     Dates: start: 20040811
  3. ASACOL [Concomitant]
     Dosage: 2 CAPSULES THREE TIMES DAILY (400 MG)
  4. CARTIA XT [Concomitant]

REACTIONS (2)
  - DYSGEUSIA [None]
  - NAUSEA [None]
